FAERS Safety Report 7402561-7 (Version None)
Quarter: 2011Q2

REPORT INFORMATION
  Report Type: 
  Country: None (occurrence: None)
  Receive Date: 20110408
  Receipt Date: 20110401
  Transmission Date: 20111010
  Serious: Yes (Hospitalization)
  Sender: FDA-Public Use
  Company Number: US-B.I. PHARMACEUTICALS,INC./RIDGEFIELD-2011-BP-09831BP

PATIENT
  Sex: Female

DRUGS (10)
  1. CARBAMAZEPINE [Concomitant]
     Dosage: 300 MG
     Route: 048
  2. ESTROGENIC SUBSTANCE [Concomitant]
     Indication: MENOPAUSE
     Route: 062
  3. CARDIZEM CD [Concomitant]
     Indication: HYPERTENSION
     Dosage: 240 MG
     Route: 048
  4. PROGESTERONE [Concomitant]
     Indication: MENOPAUSE
     Route: 062
  5. DIGOXIN [Concomitant]
     Indication: ATRIAL FIBRILLATION
     Dosage: 0.25 MG
     Route: 048
  6. PRADAXA [Suspect]
     Indication: ATRIAL FIBRILLATION
     Dosage: 300 MG
     Route: 048
     Dates: start: 20101201, end: 20110325
  7. VITAMIN B-12 [Concomitant]
     Indication: PERNICIOUS ANAEMIA
     Route: 030
  8. LEVOTHYROXINE [Concomitant]
     Indication: HYPOTHYROIDISM
     Dosage: 100 MG
     Route: 048
  9. VITAMIN D [Concomitant]
     Indication: PROPHYLAXIS
     Dosage: 1000 MG
     Route: 048
  10. PAXIL [Concomitant]
     Indication: ANXIETY
     Dosage: 40 MG
     Route: 048

REACTIONS (4)
  - MUSCULOSKELETAL PAIN [None]
  - PULMONARY EMBOLISM [None]
  - PAIN IN EXTREMITY [None]
  - DEEP VEIN THROMBOSIS [None]
